FAERS Safety Report 9419731 (Version 1)
Quarter: 2013Q3

REPORT INFORMATION
  Report Type: Spontaneous
  Country: US (occurrence: US)
  Receive Date: 20130725
  Receipt Date: 20130725
  Transmission Date: 20140515
  Serious: No
  Sender: FDA-Public Use
  Company Number: US-US-EMD SERONO, INC.-7083924

PATIENT
  Sex: Female
  Weight: 123 kg

DRUGS (13)
  1. REBIF [Suspect]
     Indication: RELAPSING-REMITTING MULTIPLE SCLEROSIS
     Route: 058
     Dates: start: 20101101
  2. POTASSIUM CHLORIDE [Concomitant]
     Indication: PRODUCT USED FOR UNKNOWN INDICATION
  3. ASPIRIN [Concomitant]
     Indication: ANTICOAGULATION DRUG LEVEL THERAPEUTIC
  4. MULTIVITAMIN [Concomitant]
     Indication: SUPPLEMENTATION THERAPY
  5. VITAMIN D [Concomitant]
     Indication: SUPPLEMENTATION THERAPY
  6. LEVOTHYROXINE [Concomitant]
     Indication: HYPOTHYROIDISM
  7. NIFEDIPINE [Concomitant]
     Indication: BLOOD PRESSURE
  8. CLONIDINE [Concomitant]
     Indication: BLOOD PRESSURE
  9. LISINOPRIL [Concomitant]
     Indication: BLOOD PRESSURE
  10. OXCARBAZEPINE [Concomitant]
     Indication: CONVULSION
  11. CITALOPRAM [Concomitant]
     Indication: DEPRESSION
  12. PRAVASTATIN [Concomitant]
     Indication: BLOOD CHOLESTEROL
  13. UNSPECIFIED INGREDIENT [Concomitant]
     Indication: PRODUCT USED FOR UNKNOWN INDICATION

REACTIONS (1)
  - Unresponsive to stimuli [Recovered/Resolved]
